FAERS Safety Report 10095736 (Version 3)
Quarter: 2015Q3

REPORT INFORMATION
  Report Type: Spontaneous
  Country: US (occurrence: US)
  Receive Date: 20140422
  Receipt Date: 20150814
  Transmission Date: 20151125
  Serious: No
  Sender: FDA-Public Use
  Company Number: US-GILEAD-2013-0072604

PATIENT
  Age: 55 Year
  Sex: Male

DRUGS (4)
  1. TYVASO [Suspect]
     Active Substance: TREPROSTINIL
  2. LETAIRIS [Suspect]
     Active Substance: AMBRISENTAN
     Indication: DRUG ABUSE
     Dosage: 10 MG, QD
     Route: 048
     Dates: start: 20120116
  3. LETAIRIS [Suspect]
     Active Substance: AMBRISENTAN
     Indication: PULMONARY HYPERTENSION
  4. REVATIO [Concomitant]
     Active Substance: SILDENAFIL CITRATE

REACTIONS (3)
  - Cough [Unknown]
  - Headache [Unknown]
  - Depression [Unknown]

NARRATIVE: CASE EVENT DATE: 201303
